FAERS Safety Report 9009004 (Version 2)
Quarter: 2013Q1

REPORT INFORMATION
  Report Type: Spontaneous
  Country: US (occurrence: US)
  Receive Date: 20130111
  Receipt Date: 20130227
  Transmission Date: 20140127
  Serious: No
  Sender: FDA-Public Use
  Company Number: US-PFIZER INC-2013010405

PATIENT
  Sex: Female

DRUGS (1)
  1. CLINDAMYCIN PHOSPHATE [Suspect]
     Indication: VAGINAL INFECTION
     Dosage: UNK
     Route: 067

REACTIONS (3)
  - Drug ineffective [Unknown]
  - Vaginal infection [Unknown]
  - Product quality issue [Unknown]
